FAERS Safety Report 14032392 (Version 1)
Quarter: 2017Q4

REPORT INFORMATION
  Report Type: Report from Study
  Country: US (occurrence: US)
  Receive Date: 20171003
  Receipt Date: 20171003
  Transmission Date: 20180321
  Serious: Yes (Hospitalization)
  Sender: FDA-Public Use
  Company Number: US-SUN PHARMACEUTICAL INDUSTRIES LTD-2016US-117042

PATIENT
  Age: 48 Year
  Sex: Male

DRUGS (3)
  1. CLONAZEPAM. [Suspect]
     Active Substance: CLONAZEPAM
     Indication: PRODUCT USED FOR UNKNOWN INDICATION
     Route: 065
  2. METFORMIN [Suspect]
     Active Substance: METFORMIN HYDROCHLORIDE
     Indication: PRODUCT USED FOR UNKNOWN INDICATION
     Route: 065
  3. TRAZODONE [Suspect]
     Active Substance: TRAZODONE HYDROCHLORIDE
     Indication: PRODUCT USED FOR UNKNOWN INDICATION
     Dosage: UNK
     Route: 065

REACTIONS (10)
  - Bradycardia [Unknown]
  - Acute respiratory distress syndrome [Not Recovered/Not Resolved]
  - Hypoglycaemia [Unknown]
  - Acute kidney injury [Unknown]
  - Haemolysis [Unknown]
  - Toxicity to various agents [Unknown]
  - Coma [Unknown]
  - Hypotension [Unknown]
  - Ventricular arrhythmia [Unknown]
  - Metabolic acidosis [Not Recovered/Not Resolved]
